FAERS Safety Report 24555537 (Version 1)
Quarter: 2024Q4

REPORT INFORMATION
  Report Type: Spontaneous
  Country: FR (occurrence: FR)
  Receive Date: 20241028
  Receipt Date: 20241028
  Transmission Date: 20250115
  Serious: Yes (Hospitalization)
  Sender: ELI LILLY AND COMPANY
  Company Number: None

PATIENT
  Age: 93 Year
  Sex: Male

DRUGS (2)
  1. PROZAC [Suspect]
     Active Substance: FLUOXETINE HYDROCHLORIDE
     Indication: Depression
     Dosage: 1 DOSAGE FORM, DAILY
     Route: 048
  2. ELIQUIS [Suspect]
     Active Substance: APIXABAN
     Indication: Thrombosis prophylaxis
     Dosage: 5 MG, DAILY (2.5 MG 2X/DAY)
     Route: 048
     Dates: end: 20240513

REACTIONS (1)
  - Haematuria [Recovered/Resolved]

NARRATIVE: CASE EVENT DATE: 20240513
